FAERS Safety Report 4878821-0 (Version None)
Quarter: 2006Q1

REPORT INFORMATION
  Report Type: 
  Country: None (occurrence: None)
  Receive Date: 20060112
  Receipt Date: 20060106
  Transmission Date: 20060701
  Serious: Yes (Other)
  Sender: FDA-Public Use
  Company Number: US-GLAXOSMITHKLINE-A0588131A

PATIENT
  Age: 45 Year
  Sex: Female

DRUGS (10)
  1. LAMICTAL [Suspect]
     Dosage: 25MG PER DAY
     Route: 048
     Dates: start: 20051227, end: 20051229
  2. LORAZEPAM [Concomitant]
  3. PAXIL [Concomitant]
  4. VISTARIL [Concomitant]
  5. NEXIUM [Concomitant]
  6. ALLEGRA [Concomitant]
  7. FLONASE [Concomitant]
  8. ADVAIR DISKUS 250/50 [Concomitant]
  9. DITROPAN XL [Concomitant]
  10. ACETAMINOPHEN [Concomitant]

REACTIONS (5)
  - BURNING SENSATION [None]
  - LYMPHADENOPATHY [None]
  - MOUTH ULCERATION [None]
  - PHARYNGEAL OEDEMA [None]
  - PRURITUS [None]
